FAERS Safety Report 5319095-6 (Version None)
Quarter: 2007Q2

REPORT INFORMATION
  Report Type: 
  Country: None (occurrence: None)
  Receive Date: 20070508
  Receipt Date: 20070504
  Transmission Date: 20071010
  Serious: Yes (Hospitalization, Other)
  Sender: FDA-Public Use
  Company Number: A0640977A

PATIENT
  Age: 43 Year
  Sex: Male
  Weight: 95.3 kg

DRUGS (18)
  1. FLOLAN [Suspect]
     Dosage: 10NGKM CONTINUOUS
     Route: 042
     Dates: start: 20011213
  2. SILDENAFIL CITRATE [Suspect]
     Dosage: 80MG THREE TIMES PER DAY
     Route: 048
     Dates: start: 20050331
  3. COZAAR [Concomitant]
     Dosage: 50MG PER DAY
     Route: 048
     Dates: start: 20061118
  4. LASIX [Concomitant]
     Dosage: 40MG PER DAY
     Route: 048
     Dates: start: 20011202
  5. METFORMIN HYDROCHLORIDE [Concomitant]
     Dosage: 1000MG TWICE PER DAY
     Route: 048
  6. RHINOCORT AQUA [Concomitant]
     Dosage: 2SPR IN THE MORNING
     Route: 045
     Dates: start: 20011202
  7. CLARITIN [Concomitant]
     Dosage: 10MG PER DAY
     Route: 048
     Dates: start: 20040720
  8. CALCIUM CHLORIDE [Concomitant]
     Dosage: 600MG TWICE PER DAY
     Route: 048
     Dates: start: 20031104
  9. WARFARIN SODIUM [Concomitant]
     Dosage: 5MG PER DAY
     Route: 048
     Dates: start: 20011221
  10. MAGNESIUM OXIDE [Concomitant]
     Dosage: 250MG TWICE PER DAY
     Route: 048
     Dates: start: 20031104
  11. ASCORBIC ACID [Concomitant]
     Dosage: 500MG PER DAY
     Route: 048
     Dates: start: 20021120
  12. MULTI-VITAMIN [Concomitant]
     Dosage: 1CAP PER DAY
     Route: 048
  13. POTASSIUM CHLORIDE [Concomitant]
     Dosage: 20MEQ PER DAY
     Route: 048
     Dates: start: 20040720
  14. GLUCOPHAGE [Concomitant]
     Dosage: 1G TWICE PER DAY
     Route: 048
     Dates: start: 20060627
  15. VITAMIN B COMPLEX CAP [Concomitant]
     Dosage: 1UNIT PER DAY
     Route: 048
     Dates: start: 20041101
  16. VITAMIN D [Concomitant]
     Dosage: 250IU TWICE PER DAY
     Route: 048
     Dates: start: 20021120
  17. ASCORBIC ACID [Concomitant]
     Dosage: 500MG THREE TIMES PER DAY
     Route: 048
     Dates: start: 20021120
  18. PRILOSEC [Concomitant]
     Dosage: 20MG PER DAY
     Route: 048
     Dates: start: 20060719

REACTIONS (2)
  - CATHETER RELATED COMPLICATION [None]
  - PHARMACEUTICAL PRODUCT COMPLAINT [None]
